FAERS Safety Report 7177496-8 (Version None)
Quarter: 2010Q4

REPORT INFORMATION
  Report Type: 
  Country: None (occurrence: None)
  Receive Date: 20101123
  Receipt Date: 20101001
  Transmission Date: 20110411
  Serious: No
  Sender: FDA-Public Use
  Company Number: 019966

PATIENT
  Sex: Female
  Weight: 87 kg

DRUGS (7)
  1. CIMZIA [Suspect]
     Indication: JUVENILE ARTHRITIS
     Dosage: (400 MG X/2 WEEKS SUBCUTANEOUS)
     Route: 058
     Dates: start: 20100829, end: 20100926
  2. INDOCIN /00003801/ [Concomitant]
  3. PREDNISONE [Concomitant]
  4. ATENOLOL [Concomitant]
  5. XANAX [Concomitant]
  6. TRAMADOL [Concomitant]
  7. FLEXERIL [Concomitant]

REACTIONS (3)
  - ASTIGMATISM [None]
  - MALAISE [None]
  - PYREXIA [None]
